FAERS Safety Report 12583197 (Version 2)
Quarter: 2016Q3

REPORT INFORMATION
  Report Type: Spontaneous
  Country: US (occurrence: US)
  Receive Date: 20160722
  Receipt Date: 20160804
  Transmission Date: 20161109
  Serious: Yes (Hospitalization, Other)
  Sender: FDA-Public Use
  Company Number: US-GLAXOSMITHKLINE-US2016GSK105074

PATIENT
  Sex: Female

DRUGS (2)
  1. ADVAIR HFA [Suspect]
     Active Substance: FLUTICASONE PROPIONATE\SALMETEROL XINAFOATE
     Indication: CHRONIC OBSTRUCTIVE PULMONARY DISEASE
     Dosage: 2 PUFF(S), U
     Dates: start: 201304
  2. ADVAIR HFA [Suspect]
     Active Substance: FLUTICASONE PROPIONATE\SALMETEROL XINAFOATE
     Dosage: 1 PUFF(S), QD

REACTIONS (8)
  - Hospitalisation [Unknown]
  - Pneumonia [Unknown]
  - Intentional product misuse [Unknown]
  - Inability to afford medication [Unknown]
  - Anxiety [Unknown]
  - Underdose [Unknown]
  - Chronic obstructive pulmonary disease [Unknown]
  - Hypercapnia [Unknown]

NARRATIVE: CASE EVENT DATE: 2015
